FAERS Safety Report 19983487 (Version 1)
Quarter: 2021Q4

REPORT INFORMATION
  Report Type: Spontaneous
  Country: US (occurrence: US)
  Receive Date: 20211020
  Receipt Date: 20211020
  Transmission Date: 20220303
  Serious: No
  Sender: FDA-Public Use
  Company Number: None

PATIENT
  Age: 61 Year
  Sex: Female

DRUGS (1)
  1. TALTZ [Suspect]
     Active Substance: IXEKIZUMAB
     Indication: Psoriasis
     Dosage: INJECT 160MG (2 SYRINGES) SUBCUTANEOUSLY AT WEEK 0 THEN 80MG (1 SYRINGE) AT WEEK 2 AS DIRECTED???OTH
     Route: 058
     Dates: start: 202107

REACTIONS (1)
  - Ear infection [None]
